FAERS Safety Report 6395450-0 (Version None)
Quarter: 2009Q4

REPORT INFORMATION
  Report Type: 
  Country: None (occurrence: None)
  Receive Date: 20091009
  Receipt Date: 20090928
  Transmission Date: 20100525
  Serious: Yes (Other)
  Sender: FDA-Public Use
  Company Number: US-PFIZER INC-2009278904

PATIENT

DRUGS (2)
  1. SUNITINIB MALATE [Suspect]
     Indication: ADRENOCORTICAL CARCINOMA
     Route: 048
  2. BEVACIZUMAB [Suspect]
     Indication: ADRENOCORTICAL CARCINOMA
     Route: 042

REACTIONS (1)
  - ANAL FISTULA [None]
